FAERS Safety Report 18732756 (Version 2)
Quarter: 2021Q1

REPORT INFORMATION
  Report Type: Spontaneous
  Country: JP (occurrence: JP)
  Receive Date: 20210112
  Receipt Date: 20210318
  Transmission Date: 20210419
  Serious: Yes (Death, Hospitalization)
  Sender: FDA-Public Use
  Company Number: JP-EISAI MEDICAL RESEARCH-EC-2020-081997

PATIENT
  Age: 78 Year
  Sex: Male
  Weight: 54 kg

DRUGS (5)
  1. HACHIMIJIOGAN [Concomitant]
     Active Substance: HERBALS
     Indication: PRODUCT USED FOR UNKNOWN INDICATION
     Dosage: DOSE AND FREQUENCY UNKNOWN
     Route: 065
  2. LENVATINIB [Suspect]
     Active Substance: LENVATINIB
     Route: 048
     Dates: start: 20180528, end: 20180602
  3. OLMESARTAN [Concomitant]
     Active Substance: OLMESARTAN
     Indication: PRODUCT USED FOR UNKNOWN INDICATION
     Dosage: DOSE AND FREQUENCY UNKNOWN
     Route: 065
  4. LENVATINIB [Suspect]
     Active Substance: LENVATINIB
     Indication: HEPATOCELLULAR CARCINOMA
     Route: 048
     Dates: start: 20180511, end: 20180524
  5. COCARL [Concomitant]
     Active Substance: ACETAMINOPHEN
     Indication: PRODUCT USED FOR UNKNOWN INDICATION
     Dosage: DOSE AND FREQUENCY UNKNOWN
     Route: 065

REACTIONS (4)
  - Cholangitis [Unknown]
  - Tumour haemorrhage [Fatal]
  - Hepatic failure [Fatal]
  - Pyrexia [Not Recovered/Not Resolved]

NARRATIVE: CASE EVENT DATE: 201805
